FAERS Safety Report 23079556 (Version 1)
Quarter: 2023Q4

REPORT INFORMATION
  Report Type: Spontaneous
  Country: US (occurrence: US)
  Receive Date: 20231018
  Receipt Date: 20231018
  Transmission Date: 20240110
  Serious: Yes (Other)
  Sender: FDA-Public Use
  Company Number: US-Stemline Therapeutics, Inc.-2023ST002519

PATIENT
  Age: 50 Year
  Sex: Female

DRUGS (1)
  1. ORSERDU [Suspect]
     Active Substance: ELACESTRANT
     Indication: Product used for unknown indication
     Route: 048
     Dates: start: 20230606

REACTIONS (12)
  - Disease progression [Unknown]
  - Taste disorder [Unknown]
  - Malaise [Unknown]
  - Tumour marker increased [Unknown]
  - Anxiety [Unknown]
  - Night sweats [Unknown]
  - Inappropriate schedule of product administration [Recovered/Resolved]
  - Dizziness [Recovered/Resolved]
  - Myalgia [Recovered/Resolved]
  - Nausea [Unknown]
  - Vomiting [Recovered/Resolved]
  - Constipation [Recovered/Resolved]
